FAERS Safety Report 6931011-X (Version None)
Quarter: 2010Q3

REPORT INFORMATION
  Report Type: 
  Country: None (occurrence: None)
  Receive Date: 20100817
  Receipt Date: 20100817
  Transmission Date: 20110219
  Serious: Yes (Other)
  Sender: FDA-Public Use
  Company Number: None

PATIENT
  Age: 65 Year
  Sex: Male
  Weight: 106.8 kg

DRUGS (1)
  1. VICTOZA [Suspect]
     Indication: TYPE 2 DIABETES MELLITUS
     Dosage: 0.6 MG 1ST WEEK DAILY SQ 1.2 MG 2ND WEEK DAILY SQ
     Route: 058
     Dates: start: 20100723, end: 20100805

REACTIONS (1)
  - PANCREATITIS [None]
